FAERS Safety Report 8363273-9 (Version None)
Quarter: 2012Q2

REPORT INFORMATION
  Report Type: 
  Country: None (occurrence: None)
  Receive Date: 20120516
  Receipt Date: 20111209
  Transmission Date: 20120825
  Serious: No
  Sender: FDA-Public Use
  Company Number: US-ALEXION-A201101854

PATIENT
  Sex: Male
  Weight: 81 kg

DRUGS (1)
  1. SOLIRIS [Suspect]
     Indication: PAROXYSMAL NOCTURNAL HAEMOGLOBINURIA
     Dosage: 600 MG, QW
     Route: 042

REACTIONS (6)
  - HEPATIC ENZYME INCREASED [None]
  - JAUNDICE [None]
  - NASOPHARYNGITIS [None]
  - ABDOMINAL PAIN [None]
  - CHOLELITHIASIS [None]
  - HAEMOGLOBIN DECREASED [None]
